FAERS Safety Report 15261149 (Version 3)
Quarter: 2021Q4

REPORT INFORMATION
  Report Type: Report from Study
  Country: AU (occurrence: AU)
  Receive Date: 20180809
  Receipt Date: 20211207
  Transmission Date: 20220303
  Serious: Yes (Hospitalization, Other)
  Sender: FDA-Public Use
  Company Number: AU-BRISTOL-MYERS SQUIBB COMPANY-BMS-2018-068579

PATIENT
  Age: 77 Year
  Sex: Female
  Weight: 69 kg

DRUGS (6)
  1. NIVOLUMAB [Suspect]
     Active Substance: NIVOLUMAB
     Indication: Malignant melanoma
     Dosage: 480 MG, Q4WK
     Route: 042
     Dates: start: 20180111, end: 20180323
  2. PLACEBO [Suspect]
     Active Substance: UNSPECIFIED INGREDIENT
     Indication: Malignant melanoma
     Dosage: UNK
     Route: 065
     Dates: start: 20180111, end: 20180223
  3. AMLODIPINE [Concomitant]
     Active Substance: AMLODIPINE BESYLATE
     Indication: Product used for unknown indication
     Dosage: 10 MG, UNK
     Route: 065
     Dates: start: 2003
  4. APIXABAN [Concomitant]
     Active Substance: APIXABAN
     Indication: Product used for unknown indication
     Dosage: 10 MG, UNK
     Route: 065
     Dates: start: 201709
  5. CANDESARTAN CILEXETIL\HYDROCHLOROTHIAZIDE [Concomitant]
     Active Substance: CANDESARTAN CILEXETIL\HYDROCHLOROTHIAZIDE
     Indication: Product used for unknown indication
     Dosage: 1 TAB, UNK
     Route: 065
     Dates: start: 2003
  6. SLOW K [Concomitant]
     Active Substance: POTASSIUM CHLORIDE
     Indication: Product used for unknown indication
     Dosage: 600 MG, UNK
     Route: 065
     Dates: start: 2015

REACTIONS (1)
  - Diabetic ketoacidosis [Recovered/Resolved]

NARRATIVE: CASE EVENT DATE: 20180718
